FAERS Safety Report 4860368-9 (Version None)
Quarter: 2005Q4

REPORT INFORMATION
  Report Type: 
  Country: None (occurrence: None)
  Receive Date: 20051219
  Receipt Date: 20051208
  Transmission Date: 20060501
  Serious: Yes (Other)
  Sender: FDA-Public Use
  Company Number: PHEH2005US13387

PATIENT
  Age: 78 Year
  Sex: Male

DRUGS (3)
  1. ZOMETA [Suspect]
     Indication: RENAL CELL CARCINOMA STAGE UNSPECIFIED
     Dosage: MONTHLY
  2. ALLOPURINOL [Concomitant]
  3. PROSCAR [Concomitant]

REACTIONS (7)
  - BONE DISORDER [None]
  - DENTAL OPERATION [None]
  - IMPAIRED HEALING [None]
  - OPEN WOUND [None]
  - ORAL SURGERY [None]
  - OSTEONECROSIS [None]
  - PAIN [None]
